FAERS Safety Report 7549762-5 (Version None)
Quarter: 2011Q2

REPORT INFORMATION
  Report Type: 
  Country: None (occurrence: None)
  Receive Date: 20110615
  Receipt Date: 20060912
  Transmission Date: 20111010
  Serious: Yes (Hospitalization, Other)
  Sender: FDA-Public Use
  Company Number: PHFR2005GB00936

PATIENT
  Sex: Male

DRUGS (5)
  1. VALPROATE SODIUM [Concomitant]
     Indication: CONVULSION
     Dosage: 600 MG, QD
     Route: 048
     Dates: start: 20060814
  2. ALCOHOL [Concomitant]
     Route: 048
  3. CLOZAPINE [Suspect]
     Dosage: 350 MG, QD
     Route: 048
  4. THIAMINE [Concomitant]
     Dosage: 300 MG, QD
     Dates: start: 20060814
  5. CLOZAPINE [Suspect]
     Indication: SCHIZOPHRENIA
     Dosage: 400 MG, UNK
     Route: 048
     Dates: start: 20040611

REACTIONS (5)
  - HEPATIC FUNCTION ABNORMAL [None]
  - HAEMATEMESIS [None]
  - DRUG LEVEL INCREASED [None]
  - GAMMA-GLUTAMYLTRANSFERASE INCREASED [None]
  - ALANINE AMINOTRANSFERASE INCREASED [None]
